FAERS Safety Report 6752799-7 (Version None)
Quarter: 2010Q2

REPORT INFORMATION
  Report Type: 
  Country: None (occurrence: None)
  Receive Date: 20100602
  Receipt Date: 20100519
  Transmission Date: 20101027
  Serious: Yes (Life-Threatening, Other)
  Sender: FDA-Public Use
  Company Number: GB-MYLANLABS-2010S1008832

PATIENT
  Age: 86 Year
  Sex: Female
  Weight: 60 kg

DRUGS (3)
  1. ALENDRONIC ACID [Suspect]
     Indication: OSTEOPOROSIS
     Route: 048
     Dates: start: 20010501, end: 20091101
  2. BENDROFLUAZIDE [Concomitant]
     Indication: HYPERTENSION
     Route: 048
     Dates: start: 20010101
  3. LANSOPRAZOLE [Concomitant]
     Indication: GASTROOESOPHAGEAL REFLUX DISEASE
     Route: 048
     Dates: start: 20090801

REACTIONS (1)
  - OESOPHAGEAL CARCINOMA [None]
